FAERS Safety Report 16086819 (Version 1)
Quarter: 2019Q1

REPORT INFORMATION
  Report Type: Spontaneous
  Country: CA (occurrence: CA)
  Receive Date: 20190318
  Receipt Date: 20190318
  Transmission Date: 20190418
  Serious: Yes (Death, Other)
  Sender: FDA-Public Use
  Company Number: CA-BAXTER-2019BAX005209

PATIENT
  Age: 23 Month
  Sex: Male

DRUGS (1)
  1. HIGHLY CONCENTRATED POTASSIUM CHLORIDE 400MEQ/L [Suspect]
     Active Substance: POTASSIUM CHLORIDE
     Indication: PRODUCT USED FOR UNKNOWN INDICATION
     Dosage: DOSAGE FORM: NOT SPECIFIED
     Route: 042

REACTIONS (2)
  - Medication error [Unknown]
  - Death [Fatal]
